FAERS Safety Report 9982922 (Version 1)
Quarter: 2014Q1

REPORT INFORMATION
  Report Type: Report from Study
  Country: US (occurrence: US)
  Receive Date: 20140307
  Receipt Date: 20140307
  Transmission Date: 20141002
  Serious: No
  Sender: FDA-Public Use
  Company Number: US-ABBVIE-13P-163-1176504-00

PATIENT
  Age: 64 Year
  Sex: Male

DRUGS (7)
  1. HUMIRA [Suspect]
     Indication: PSORIASIS
     Dates: start: 20090910, end: 201303
  2. GLIPIZIDE [Concomitant]
     Indication: DIABETES MELLITUS
  3. GLUCOPHAGE [Concomitant]
     Indication: DIABETES MELLITUS
  4. JANUVIA [Concomitant]
     Indication: DIABETES MELLITUS
  5. PRILOSEC [Concomitant]
     Indication: DIABETES MELLITUS
  6. GOODY^S [Concomitant]
     Indication: HEADACHE
     Dosage: 260/520/32.5MG
  7. LUMIGAN [Concomitant]
     Indication: GLAUCOMA
     Dosage: 1 DROP EACH EYE QD

REACTIONS (5)
  - Blood testosterone decreased [Not Recovered/Not Resolved]
  - Hypertension [Not Recovered/Not Resolved]
  - Blood cholesterol increased [Not Recovered/Not Resolved]
  - Psoriasis [Not Recovered/Not Resolved]
  - Rash [Recovered/Resolved]
